FAERS Safety Report 5187708-8 (Version None)
Quarter: 2006Q4

REPORT INFORMATION
  Report Type: 
  Country: None (occurrence: None)
  Receive Date: 20061214
  Receipt Date: 20061129
  Transmission Date: 20070319
  Serious: Yes (Other)
  Sender: FDA-Public Use
  Company Number: 8017125

PATIENT
  Age: 34 Year
  Sex: Male
  Weight: 80.9 kg

DRUGS (2)
  1. DIPENTUM [Suspect]
     Indication: COLITIS ULCERATIVE
     Dosage: 500 MG 2/D PO
     Route: 048
     Dates: start: 19950101, end: 20040101
  2. DIPENTUM [Suspect]
     Indication: COLITIS ULCERATIVE
     Dosage: 250 MG 2/D PO
     Route: 048
     Dates: start: 20040101

REACTIONS (4)
  - HEPATIC STEATOSIS [None]
  - IATROGENIC INJURY [None]
  - PANCREATITIS [None]
  - POST PROCEDURAL COMPLICATION [None]
